FAERS Safety Report 25919016 (Version 1)
Quarter: 2025Q4

REPORT INFORMATION
  Report Type: Spontaneous
  Country: US (occurrence: None)
  Receive Date: 20251011
  Receipt Date: 20251011
  Transmission Date: 20260118
  Serious: Yes (Hospitalization)
  Sender: FDA-CTU
  Company Number: None

PATIENT
  Age: 70 Year
  Sex: Male
  Weight: 95.4 kg

DRUGS (2)
  1. XELODA [Suspect]
     Active Substance: CAPECITABINE
     Dates: end: 20250925
  2. ELOXATIN [Suspect]
     Active Substance: OXALIPLATIN
     Dates: end: 20250912

REACTIONS (27)
  - Pulmonary embolism [None]
  - Hypokalaemia [None]
  - Syncope [None]
  - Wound complication [None]
  - Abdominal pain lower [None]
  - Diarrhoea [None]
  - Diverticulum intestinal [None]
  - Portal venous gas [None]
  - Colitis [None]
  - Gastrointestinal wall thickening [None]
  - Diverticulitis [None]
  - Infection [None]
  - Inflammation [None]
  - Neoplasm malignant [None]
  - Intestinal ischaemia [None]
  - Appendicectomy [None]
  - Intestinal perforation [None]
  - Incision site haemorrhage [None]
  - Activated partial thromboplastin time prolonged [None]
  - Catheter site haemorrhage [None]
  - Incision site haematoma [None]
  - Anticoagulation drug level above therapeutic [None]
  - Ileus [None]
  - Atelectasis [None]
  - Platelet count decreased [None]
  - Haemoglobin decreased [None]
  - Red blood cell transfusion [None]

NARRATIVE: CASE EVENT DATE: 20250930
